FAERS Safety Report 6142332-5 (Version None)
Quarter: 2009Q2

REPORT INFORMATION
  Report Type: 
  Country: None (occurrence: None)
  Receive Date: 20090402
  Receipt Date: 20090402
  Transmission Date: 20091009
  Serious: Yes (Other)
  Sender: FDA-Public Use
  Company Number: None

PATIENT
  Sex: Male
  Weight: 95.2554 kg

DRUGS (1)
  1. MELOXICAM [Suspect]
     Indication: ARTHRITIS
     Dosage: 15 MG DAILY ORAL
     Route: 048
     Dates: start: 20090301

REACTIONS (3)
  - ARTHRITIS [None]
  - DISEASE RECURRENCE [None]
  - PRODUCT QUALITY ISSUE [None]
